FAERS Safety Report 21890358 (Version 9)
Quarter: 2024Q1

REPORT INFORMATION
  Report Type: Spontaneous
  Country: US (occurrence: US)
  Receive Date: 20230120
  Receipt Date: 20240301
  Transmission Date: 20240410
  Serious: Yes (Hospitalization, Other)
  Sender: FDA-Public Use
  Company Number: US-PFIZER INC-202300025612

PATIENT
  Age: 82 Year
  Sex: Male
  Weight: 74.39 kg

DRUGS (19)
  1. VYNDAMAX [Suspect]
     Active Substance: TAFAMIDIS
     Indication: Amyloidosis
     Dosage: TAKE 1 CAPSULE(S) EVERY DAY FOR 30 DAYS
     Route: 048
     Dates: start: 20230313
  2. VYNDAMAX [Suspect]
     Active Substance: TAFAMIDIS
     Indication: Familial amyloidosis
     Dosage: UNK
  3. VYNDAMAX [Suspect]
     Active Substance: TAFAMIDIS
     Indication: Cardiac amyloidosis
     Dosage: 61 MG, 1X/DAY
     Route: 048
     Dates: start: 20230601
  4. VYNDAMAX [Suspect]
     Active Substance: TAFAMIDIS
     Indication: Acquired ATTR amyloidosis
     Dosage: 61 MG, 1X/DAY
     Dates: start: 2022
  5. TORSEMIDE [Concomitant]
     Active Substance: TORSEMIDE
     Indication: Fluid retention
     Dosage: 20 MG, 1X/DAY (IN MORNING)
     Route: 048
  6. TORSEMIDE [Concomitant]
     Active Substance: TORSEMIDE
     Dosage: 40 MG, 2X/DAY (TAKE 2 TABLET(S))
     Route: 048
     Dates: start: 20230713
  7. METOPROLOL TARTRATE [Concomitant]
     Active Substance: METOPROLOL TARTRATE
     Dosage: 25 MG, 2X/DAY
  8. JARDIANCE [Concomitant]
     Active Substance: EMPAGLIFLOZIN
     Dosage: 10 MG, 1X/DAY (EVERY MORNING)
     Route: 048
  9. XARELTO [Concomitant]
     Active Substance: RIVAROXABAN
     Indication: Anticoagulant therapy
     Dosage: 15 MG, 1X/DAY (EVERY EVENING)
     Route: 048
     Dates: start: 20220509
  10. XARELTO [Concomitant]
     Active Substance: RIVAROXABAN
     Dosage: TAKE 2 TABLET(S) EVERY A DAY IN THE EVENING
     Route: 048
     Dates: start: 20220509
  11. ASPIRIN [Concomitant]
     Active Substance: ASPIRIN
     Dosage: 81 MG, 1X/DAY (EVERY MORNING)
  12. LANSOPRAZOLE [Concomitant]
     Active Substance: LANSOPRAZOLE
     Indication: Gastrooesophageal reflux disease
     Dosage: 30 MG, DAILY (BEFORE A MEAL DAILY/ TAKE 1 CAPSULES EVERY DAY BY ORAL ROUTE)
     Route: 048
     Dates: start: 20220412
  13. POTASSIUM CHLORIDE [Concomitant]
     Active Substance: POTASSIUM CHLORIDE
     Dosage: 20 MEQ, 2X/DAY (TAKE 2 CAPSULE(S))
     Route: 048
     Dates: start: 20221021
  14. ROSUVASTATIN CALCIUM [Concomitant]
     Active Substance: ROSUVASTATIN CALCIUM
     Dosage: 20 MG, 1X/DAY AT BED TIME
     Dates: start: 20220509
  15. HYDROXYZINE HYDROCHLORIDE [Concomitant]
     Active Substance: HYDROXYZINE HYDROCHLORIDE
     Dosage: TAKE 1 TABLETS EVERY DAY BY ORAL ROUTE AS NEEDED.
     Route: 048
     Dates: start: 20230616
  16. MUPIROCIN [Concomitant]
     Active Substance: MUPIROCIN
     Dosage: UNK
     Dates: start: 20220726
  17. ROSUVASTATIN [Concomitant]
     Active Substance: ROSUVASTATIN
     Dosage: 20 MG, 1X/DAY (TAKE 1 TABLET(S) EVERY A DAY BY ORAL ROUTE AT BEDTIME)
     Route: 048
     Dates: start: 20220509
  18. TOPROL XL [Concomitant]
     Active Substance: METOPROLOL SUCCINATE
     Dosage: 25 MG, DAILY (TAKE 1 TABLET(S) EVERY A DAY)
     Route: 048
     Dates: start: 20230810
  19. VITAMIN D3 [Concomitant]
     Active Substance: CHOLECALCIFEROL
     Dosage: 25 MCG (1000)
     Dates: start: 20230616

REACTIONS (9)
  - Cardiac failure congestive [Recovered/Resolved]
  - Illness [Unknown]
  - Cataract [Recovered/Resolved]
  - Product storage error [Unknown]
  - Poor quality product administered [Unknown]
  - Product physical issue [Unknown]
  - COVID-19 [Recovered/Resolved]
  - Cardiac disorder [Unknown]
  - Mood altered [Unknown]

NARRATIVE: CASE EVENT DATE: 20200101
